FAERS Safety Report 13550394 (Version 1)
Quarter: 2017Q2

REPORT INFORMATION
  Report Type: Spontaneous
  Country: US (occurrence: US)
  Receive Date: 20170516
  Receipt Date: 20170516
  Transmission Date: 20170830
  Serious: No
  Sender: FDA-Public Use
  Company Number: US-PERNIX THERAPEUTICS-2016PT000220

PATIENT

DRUGS (1)
  1. SILENOR [Suspect]
     Active Substance: DOXEPIN HYDROCHLORIDE
     Indication: SOMNOLENCE
     Dosage: 6 MG, UNK
     Route: 048
     Dates: start: 20161011, end: 20161012

REACTIONS (2)
  - Hangover [Unknown]
  - Somnolence [Unknown]

NARRATIVE: CASE EVENT DATE: 20161011
